FAERS Safety Report 17217434 (Version 4)
Quarter: 2020Q1

REPORT INFORMATION
  Report Type: Spontaneous
  Country: FR (occurrence: FR)
  Receive Date: 20191231
  Receipt Date: 20200127
  Transmission Date: 20200409
  Serious: Yes (Other)
  Sender: FDA-Public Use
  Company Number: FR-AUROBINDO-AUR-APL-2019-105525

PATIENT
  Age: 56 Year
  Sex: Male
  Weight: 57 kg

DRUGS (10)
  1. IPRATROPIUM [Concomitant]
     Active Substance: IPRATROPIUM
     Indication: PRODUCT USED FOR UNKNOWN INDICATION
     Dosage: FOLLOWING TRACHEOTOMY SINCE 16-NOV-20 !8 AS REQUIRED
     Route: 065
     Dates: start: 20181116
  2. MEROPENEM ARROW POWDER FOR SOLUTION FOR INJECTION OR INFUSION [Suspect]
     Active Substance: MEROPENEM
     Indication: BRONCHITIS
     Dosage: 3 GRAM, ONCE A DAY
     Route: 042
     Dates: start: 20191203, end: 20191210
  3. OXYBUTYNINE [Concomitant]
     Active Substance: OXYBUTYNIN CHLORIDE
     Indication: PRODUCT USED FOR UNKNOWN INDICATION
     Dosage: 1 DOSAGE FORM, ONCE A DAY IN THE MORNING
     Route: 065
     Dates: start: 20191121
  4. TRANSIPEG [Concomitant]
     Indication: PRODUCT USED FOR UNKNOWN INDICATION
     Dosage: UNK, ONCE IN THE MORNING
     Route: 065
  5. ELIQUIS [Interacting]
     Active Substance: APIXABAN
     Indication: PRODUCT USED FOR UNKNOWN INDICATION
     Dosage: 2.5 MILLIGRAM, ONCE A DAY (5 MG ONCE A DAY)
     Route: 048
     Dates: start: 20190705
  6. DOLIPRANE [Concomitant]
     Active Substance: ACETAMINOPHEN
     Indication: PAIN
     Dosage: 500 MILLIGRAM, IF NEEDED
     Route: 065
  7. FINASTERIDE ACCORD [Concomitant]
     Active Substance: FINASTERIDE
     Indication: PRODUCT USED FOR UNKNOWN INDICATION
     Dosage: 1 DOSAGE FORM, ONCE A DAY
     Route: 065
  8. UROREC [Concomitant]
     Active Substance: SILODOSIN
     Indication: PRODUCT USED FOR UNKNOWN INDICATION
     Dosage: 1 DOSAGE FORM, ONCE A DAY IN THE EVENING
     Route: 065
  9. LANSOPRAZOLE MYLAN [Concomitant]
     Active Substance: LANSOPRAZOLE
     Indication: PRODUCT USED FOR UNKNOWN INDICATION
     Dosage: 30 MILLIGRAM, ONCE A DAY
     Route: 065
  10. PROSTIGMINE [Concomitant]
     Indication: PRODUCT USED FOR UNKNOWN INDICATION
     Dosage: ONE VIAL IN THE MORNING AND IN THE EVENING AS REQUIRED
     Route: 065

REACTIONS (4)
  - Haematuria [Recovered/Resolved]
  - Drug interaction [Recovered/Resolved]
  - Chromaturia [Recovered/Resolved]
  - Haemoptysis [Recovered/Resolved]

NARRATIVE: CASE EVENT DATE: 20191208
